FAERS Safety Report 16083118 (Version 1)
Quarter: 2019Q1

REPORT INFORMATION
  Report Type: Spontaneous
  Country: HR (occurrence: HR)
  Receive Date: 20190318
  Receipt Date: 20190318
  Transmission Date: 20190418
  Serious: Yes (Other)
  Sender: FDA-Public Use
  Company Number: HR-ACCORD-112806

PATIENT
  Sex: Male

DRUGS (1)
  1. CLOZAPINE. [Suspect]
     Active Substance: CLOZAPINE
     Dosage: 48 TABLETS OF 100 MG
     Route: 048
     Dates: start: 20180908, end: 20180908

REACTIONS (2)
  - Intentional overdose [Unknown]
  - Suicide attempt [Unknown]

NARRATIVE: CASE EVENT DATE: 20180908
